FAERS Safety Report 7587684-4 (Version None)
Quarter: 2011Q3

REPORT INFORMATION
  Report Type: 
  Country: None (occurrence: None)
  Receive Date: 20110704
  Receipt Date: 20110630
  Transmission Date: 20111222
  Serious: Yes (Death, Other)
  Sender: FDA-Public Use
  Company Number: PHHY2011IT58052

PATIENT
  Age: 54 Year
  Sex: Female

DRUGS (1)
  1. ZOLEDRONIC ACID [Suspect]
     Indication: MULTIPLE MYELOMA
     Route: 042
     Dates: start: 20080101, end: 20090201

REACTIONS (9)
  - FISTULA [None]
  - NEOPLASM MALIGNANT [None]
  - TOOTHACHE [None]
  - BONE LOSS [None]
  - PURULENT DISCHARGE [None]
  - NEOPLASM PROGRESSION [None]
  - OSTEONECROSIS OF JAW [None]
  - OSTEITIS [None]
  - GENERAL PHYSICAL HEALTH DETERIORATION [None]
